FAERS Safety Report 5603205-7 (Version None)
Quarter: 2008Q1

REPORT INFORMATION
  Report Type: 
  Country: None (occurrence: None)
  Receive Date: 20080123
  Receipt Date: 20080110
  Transmission Date: 20080703
  Serious: Yes (Other)
  Sender: FDA-Public Use
  Company Number: 2008001183

PATIENT
  Age: 22 Year
  Sex: Female

DRUGS (1)
  1. DRAMAMINE [Suspect]
     Indication: DIZZINESS
     Dosage: THEN 10 TABLETS ONCE, ORAL
     Route: 048

REACTIONS (2)
  - INCORRECT DOSE ADMINISTERED [None]
  - INTENTIONAL SELF-INJURY [None]
